FAERS Safety Report 25774246 (Version 1)
Quarter: 2025Q3

REPORT INFORMATION
  Report Type: Spontaneous
  Country: IL (occurrence: None)
  Receive Date: 20250908
  Receipt Date: 20250908
  Transmission Date: 20251021
  Serious: Yes (Hospitalization, Other)
  Sender: INFORLIFE
  Company Number: IL-INFO-20250223

PATIENT
  Age: 35 Year
  Sex: Female

DRUGS (3)
  1. ZOLEDRONIC ACID [Suspect]
     Active Substance: ZOLEDRONIC ACID
     Indication: Metastases to bone
     Route: 040
  2. LANREOTIDE [Concomitant]
     Active Substance: LANREOTIDE
     Indication: Phaeochromocytoma
  3. LEVOTHYROXINE [Concomitant]
     Active Substance: LEVOTHYROXINE
     Indication: Thyroid hormone replacement therapy

REACTIONS (1)
  - Myocarditis [Recovered/Resolved]
